FAERS Safety Report 13992327 (Version 1)
Quarter: 2017Q3

REPORT INFORMATION
  Report Type: Spontaneous
  Country: US (occurrence: US)
  Receive Date: 20170920
  Receipt Date: 20170920
  Transmission Date: 20171128
  Serious: No
  Sender: FDA-Public Use
  Company Number: US-JNJFOC-20170702524

PATIENT
  Age: 54 Year
  Sex: Female
  Weight: 55.79 kg

DRUGS (2)
  1. NIZORAL A-D [Suspect]
     Active Substance: KETOCONAZOLE
     Route: 061
  2. NIZORAL A-D [Suspect]
     Active Substance: KETOCONAZOLE
     Indication: DERMATITIS
     Dosage: 2-3 TIMES
     Route: 061

REACTIONS (2)
  - Hair texture abnormal [Recovered/Resolved]
  - Dry skin [Recovered/Resolved]
